FAERS Safety Report 5577069-4 (Version None)
Quarter: 2007Q4

REPORT INFORMATION
  Report Type: 
  Country: None (occurrence: None)
  Receive Date: 20071228
  Receipt Date: 20071206
  Transmission Date: 20080405
  Serious: No
  Sender: FDA-Public Use
  Company Number: US-BOEHRINGER INGELHEIM PHARMACEUTICALS, INC.-2007-BP-25722BP

PATIENT
  Sex: Female

DRUGS (3)
  1. CLONIDINE HCL [Suspect]
     Indication: HYPERTENSION
     Route: 048
  2. QUINARETIC [Concomitant]
  3. CARDIZEM LA [Concomitant]

REACTIONS (7)
  - ASTHMA [None]
  - CHRONIC OBSTRUCTIVE PULMONARY DISEASE [None]
  - DIABETES MELLITUS [None]
  - HEADACHE [None]
  - HYPERTENSION [None]
  - INTERVERTEBRAL DISC DEGENERATION [None]
  - OSTEOARTHRITIS [None]
